FAERS Safety Report 21684340 (Version 2)
Quarter: 2022Q4

REPORT INFORMATION
  Report Type: Spontaneous
  Country: JP (occurrence: JP)
  Receive Date: 20221205
  Receipt Date: 20221215
  Transmission Date: 20230112
  Serious: Yes (Hospitalization)
  Sender: FDA-Public Use
  Company Number: JP-MSD-2211JPN003850J

PATIENT
  Age: 41 Year
  Sex: Female
  Weight: 109 kg

DRUGS (7)
  1. BELSOMRA [Suspect]
     Active Substance: SUVOREXANT
     Dosage: 40 MILLIGRAM, ONCE
     Route: 048
  2. PREGABALIN [Concomitant]
     Active Substance: PREGABALIN
     Dosage: 3225 MILLIGRAM, ONCE
     Route: 048
  3. AMLODIPINE BESYLATE [Concomitant]
     Active Substance: AMLODIPINE BESYLATE
     Dosage: 65 MILLIGRAM, ONCE
     Route: 048
  4. SERTRALINE HYDROCHLORIDE [Concomitant]
     Active Substance: SERTRALINE HYDROCHLORIDE
     Dosage: 175 MILLIGRAM, ONCE
     Route: 048
  5. MONTELUKAST SODIUM [Concomitant]
     Active Substance: MONTELUKAST SODIUM
     Dosage: 100 MILLIGRAM, ONCE
     Route: 048
  6. CLONAZEPAM [Concomitant]
     Active Substance: CLONAZEPAM
     Dosage: 1 MILLIGRAM, ONCE
     Route: 048
  7. CELECOXIB [Concomitant]
     Active Substance: CELECOXIB
     Dosage: 4300 MILLIGRAM, ONCE
     Route: 048

REACTIONS (1)
  - Intentional overdose [Unknown]
